FAERS Safety Report 7598642-8 (Version None)
Quarter: 2011Q3

REPORT INFORMATION
  Report Type: 
  Country: None (occurrence: None)
  Receive Date: 20110711
  Receipt Date: 20110627
  Transmission Date: 20111222
  Serious: Yes (Hospitalization, Other)
  Sender: FDA-Public Use
  Company Number: TR-BRISTOL-MYERS SQUIBB COMPANY-15856479

PATIENT
  Age: 60 Year
  Sex: Male

DRUGS (3)
  1. WARFARIN SODIUM [Suspect]
  2. ALTEPLASE [Suspect]
     Route: 042
  3. HEPARIN SODIUM [Suspect]
     Indication: ANTICOAGULANT THERAPY
     Dosage: 1DF:1000 U/H

REACTIONS (7)
  - MYOCARDIAL INFARCTION [None]
  - HEPARIN-INDUCED THROMBOCYTOPENIA [None]
  - VENTRICULAR FIBRILLATION [None]
  - CARDIAC VALVE REPLACEMENT COMPLICATION [None]
  - INTERNATIONAL NORMALISED RATIO DECREASED [None]
  - EMBOLIC STROKE [None]
  - CORONARY ARTERY THROMBOSIS [None]
